FAERS Safety Report 8848745 (Version 1)
Quarter: 2012Q4

REPORT INFORMATION
  Report Type: Spontaneous
  Country: GB (occurrence: None)
  Receive Date: 20121015
  Receipt Date: 20121015
  Transmission Date: 20130627
  Serious: Yes (Other)
  Sender: FDA-Public Use
  Company Number: DSA_60115-2012

PATIENT
  Age: 60 Year
  Sex: Female

DRUGS (2)
  1. XENAZINE [Suspect]
     Indication: TARDIVE DYSKINESIA
     Dates: start: 20040628
  2. XENAZINE [Suspect]
     Indication: TARDIVE DYSKINESIA
     Dosage: (Dose reduced)

REACTIONS (2)
  - Rash [None]
  - Oedema [None]
